FAERS Safety Report 12510751 (Version 2)
Quarter: 2017Q4

REPORT INFORMATION
  Report Type: Spontaneous
  Country: GB (occurrence: GB)
  Receive Date: 20160629
  Receipt Date: 20171204
  Transmission Date: 20180320
  Serious: Yes (Hospitalization, Other)
  Sender: FDA-Public Use
  Company Number: CA-009507513-1606CAN013473

PATIENT
  Sex: Female

DRUGS (4)
  1. APREPITANT. [Suspect]
     Active Substance: APREPITANT
     Route: 048
  2. AVASTIN (SIMVASTATIN) [Suspect]
     Active Substance: SIMVASTATIN
  3. PEMETREXED DISODIUM [Suspect]
     Active Substance: PEMETREXED DISODIUM
  4. XGEVA [Suspect]
     Active Substance: DENOSUMAB

REACTIONS (9)
  - Renal disorder [Unknown]
  - Thrombosis [Unknown]
  - Blood urine [Unknown]
  - Pain in extremity [Unknown]
  - Constipation [Unknown]
  - Fatigue [Unknown]
  - Haemoglobin decreased [Unknown]
  - Poor quality sleep [Unknown]
  - Alopecia [Unknown]
